FAERS Safety Report 25400615 (Version 1)
Quarter: 2025Q2

REPORT INFORMATION
  Report Type: Spontaneous
  Country: US (occurrence: US)
  Receive Date: 20250605
  Receipt Date: 20250605
  Transmission Date: 20250717
  Serious: Yes (Hospitalization, Other)
  Sender: CADILA
  Company Number: US-CPL-005352

PATIENT
  Age: 23 Year
  Sex: Female

DRUGS (17)
  1. PREGABALIN [Suspect]
     Active Substance: PREGABALIN
     Indication: Agitation
  2. ISONIAZID [Suspect]
     Active Substance: ISONIAZID
     Indication: Pulmonary tuberculosis
  3. LITHIUM [Suspect]
     Active Substance: LITHIUM
     Indication: Agitation
     Dosage: ON WEEK EIGHT, LITHIUM WAS INCREASED TO 900 MG/DAY FOR ADDITIONAL BEHAVIORAL CONTROL
  4. VALPROIC ACID [Suspect]
     Active Substance: VALPROIC ACID
     Indication: Agitation
     Dosage: 2 G/DAY; LEVEL OF 68 MCG/ML
  5. OXYCODONE [Suspect]
     Active Substance: OXYCODONE
     Indication: Agitation
     Dosage: UP TO 15 MG/DAY
  6. RIFAMPIN [Concomitant]
     Active Substance: RIFAMPIN
     Indication: Pulmonary tuberculosis
  7. PYRAZINAMIDE [Concomitant]
     Active Substance: PYRAZINAMIDE
     Indication: Pulmonary tuberculosis
  8. ETHAMBUTOL [Concomitant]
     Active Substance: ETHAMBUTOL HYDROCHLORIDE
     Indication: Pulmonary tuberculosis
  9. DEXMEDETOMIDINE [Concomitant]
     Active Substance: DEXMEDETOMIDINE
     Indication: Sedation
  10. PROPOFOL [Concomitant]
     Active Substance: PROPOFOL
     Indication: Sedation
  11. HYDROMORPHONE [Concomitant]
     Active Substance: HYDROMORPHONE
     Indication: Sedation
  12. GUANFACINE [Concomitant]
     Active Substance: GUANFACINE
     Indication: Sedation
  13. OLANZAPINE [Concomitant]
     Active Substance: OLANZAPINE
     Indication: Sedation
  14. LORAZEPAM [Concomitant]
     Active Substance: LORAZEPAM
     Indication: Sedation
     Dosage: SLOWLY REDUCED TO 6 MG/DAY OVER THREE WEEKS
  15. HALOPERIDOL [Concomitant]
     Active Substance: HALOPERIDOL
     Indication: Agitation
     Route: 042
  16. RAMELTEON [Concomitant]
     Active Substance: RAMELTEON
     Indication: Somnolence
  17. DARIDOREXANT [Concomitant]
     Active Substance: DARIDOREXANT
     Indication: Somnolence

REACTIONS (1)
  - Serotonin syndrome [Not Recovered/Not Resolved]
